FAERS Safety Report 4395513-5 (Version None)
Quarter: 2004Q3

REPORT INFORMATION
  Report Type: 
  Country: None (occurrence: None)
  Receive Date: 20040712
  Receipt Date: 20040712
  Transmission Date: 20050211
  Serious: Yes (Other)
  Sender: FDA-Public Use
  Company Number: None

PATIENT
  Age: 82 Year
  Sex: Male
  Weight: 68.4 kg

DRUGS (13)
  1. GEMFIBROZIL [Suspect]
  2. SPIRONOLACTONE [Concomitant]
  3. ATENOLOL [Concomitant]
  4. ARTIFICIAL TEARS POLYVINYL ALCOHOL [Concomitant]
  5. LUBRICATING OPTH OINT [Concomitant]
  6. LANOXIN [Concomitant]
  7. FOSINOPRIL NA [Concomitant]
  8. GLYBURIDE [Concomitant]
  9. FELODIPINE [Concomitant]
  10. GEMFIBROZIL [Concomitant]
  11. POTASSIUM CHLORIDE [Concomitant]
  12. LANCET [Concomitant]
  13. PRECISION XTRA (GLUCOSE) TEST STRIP [Concomitant]

REACTIONS (1)
  - DIARRHOEA [None]
